FAERS Safety Report 21064337 (Version 2)
Quarter: 2022Q3

REPORT INFORMATION
  Report Type: Spontaneous
  Country: JP (occurrence: JP)
  Receive Date: 20220711
  Receipt Date: 20220915
  Transmission Date: 20221026
  Serious: Yes (Other)
  Sender: FDA-Public Use
  Company Number: JP-Eisai-202204159_LUN_P_1

PATIENT
  Age: 4 Decade
  Sex: Male

DRUGS (4)
  1. LUNESTA [Suspect]
     Active Substance: ESZOPICLONE
     Indication: Insomnia
     Dosage: 2 MG, QD (BEFORE BEDTIME)
     Route: 048
     Dates: start: 20210405, end: 20210408
  2. FLUNITRAZEPAM [Concomitant]
     Active Substance: FLUNITRAZEPAM
     Indication: Insomnia
     Dosage: 2 MG, QD (BEFORE BEDTIME)
     Route: 048
     Dates: start: 20210405
  3. ALLELOCK [Concomitant]
     Active Substance: OLOPATADINE HYDROCHLORIDE
     Indication: Dermatitis atopic
     Dosage: 5 MG, BID (MORNING AND EVENING)
     Route: 048
     Dates: start: 20210405, end: 20210408
  4. Depas [Concomitant]
     Indication: Anxiety
     Dosage: 0.5 MG, QD (NOON)
     Route: 065
     Dates: start: 20210405, end: 20210531

REACTIONS (2)
  - Rhabdomyolysis [Recovered/Resolved]
  - Hypokalaemia [Recovered/Resolved]

NARRATIVE: CASE EVENT DATE: 20210408
